FAERS Safety Report 8258606-8 (Version None)
Quarter: 2012Q2

REPORT INFORMATION
  Report Type: 
  Country: None (occurrence: None)
  Receive Date: 20120404
  Receipt Date: 20120324
  Transmission Date: 20120825
  Serious: Yes (Other)
  Sender: FDA-Public Use
  Company Number: IT-CELGENEUS-083-21880-12033182

PATIENT

DRUGS (1)
  1. REVLIMID [Suspect]
     Indication: MYELOMA RECURRENCE
     Dosage: 15 MILLIGRAM
     Route: 048
     Dates: start: 20120223, end: 20120315

REACTIONS (1)
  - MYELODYSPLASTIC SYNDROME [None]
